FAERS Safety Report 13143492 (Version 1)
Quarter: 2017Q1

REPORT INFORMATION
  Report Type: Spontaneous
  Country: US (occurrence: US)
  Receive Date: 20170124
  Receipt Date: 20170124
  Transmission Date: 20170428
  Serious: Yes (Life-Threatening, Hospitalization)
  Sender: FDA-Public Use
  Company Number: None

PATIENT
  Age: 73 Year
  Sex: Female
  Weight: 60.78 kg

DRUGS (4)
  1. DILTIAZEM. [Concomitant]
     Active Substance: DILTIAZEM
  2. BAYER LOW DOSE 81MG [Concomitant]
  3. PREPOPIK [Suspect]
     Active Substance: ANHYDROUS CITRIC ACID\MAGNESIUM OXIDE\SODIUM PICOSULFATE
     Indication: COLONOSCOPY
     Dosage: STRENGTH - 10MG/3.5G/12G PER PACKET?QUANITY - 1 PACKET DISSOLVE IN 5 OUNCES LOWER LINE IN COLD WATER?FREQUENCY - AFTER DRINKING 5 OUNCES DRINK AN ADDITIONAL FIVE-8 OUNCE OF WATER
     Route: 048
     Dates: start: 20161218, end: 20161218
  4. PROVENTIL HFA [Concomitant]
     Active Substance: ALBUTEROL SULFATE

REACTIONS (7)
  - Headache [None]
  - Erythema [None]
  - Essential hypertension [None]
  - Palpitations [None]
  - Dizziness [None]
  - Dehydration [None]
  - Hyponatraemia [None]

NARRATIVE: CASE EVENT DATE: 20161218
